FAERS Safety Report 15351679 (Version 1)
Quarter: 2018Q3

REPORT INFORMATION
  Report Type: Spontaneous
  Country: US (occurrence: US)
  Receive Date: 20180829
  Receipt Date: 20180829
  Transmission Date: 20181010
  Serious: No
  Sender: FDA-Public Use
  Company Number: None

PATIENT
  Age: 32 Year
  Sex: Male
  Weight: 164.25 kg

DRUGS (17)
  1. ZINC. [Concomitant]
     Active Substance: ZINC
  2. VITAMIN E [Concomitant]
     Active Substance: .ALPHA.-TOCOPHEROL
  3. ZOLPIDEM CR 12.5MG (GENERIC FOR AMBIEN CR 12.5MG) [Suspect]
     Active Substance: ZOLPIDEM TARTRATE
     Indication: INSOMNIA
     Dosage: ?          QUANTITY:30 TABLET(S);?
     Route: 048
     Dates: start: 20180824, end: 20180828
  4. METOPROLOL. [Concomitant]
     Active Substance: METOPROLOL
  5. LITHIUM. [Concomitant]
     Active Substance: LITHIUM
  6. ZOLPIDEM CR 12.5MG (GENERIC FOR AMBIEN CR 12.5MG) [Suspect]
     Active Substance: ZOLPIDEM TARTRATE
     Indication: INITIAL INSOMNIA
     Dosage: ?          QUANTITY:30 TABLET(S);?
     Route: 048
     Dates: start: 20180824, end: 20180828
  7. STRATTERA [Concomitant]
     Active Substance: ATOMOXETINE HYDROCHLORIDE
  8. GUANFACINE. [Concomitant]
     Active Substance: GUANFACINE
  9. PRAZOSIN. [Concomitant]
     Active Substance: PRAZOSIN
  10. MAGNESIUM [Concomitant]
     Active Substance: MAGNESIUM
  11. IRON [Concomitant]
     Active Substance: IRON
  12. BIOTIN [Concomitant]
     Active Substance: BIOTIN
  13. LISINIPROL [Concomitant]
  14. EFFEXOR XR [Concomitant]
     Active Substance: VENLAFAXINE HYDROCHLORIDE
  15. VERAPAMIL ER [Concomitant]
     Active Substance: VERAPAMIL HYDROCHLORIDE
  16. ZOLPIDEM CR 12.5MG (GENERIC FOR AMBIEN CR 12.5MG) [Suspect]
     Active Substance: ZOLPIDEM TARTRATE
     Indication: POST-TRAUMATIC STRESS DISORDER
     Dosage: ?          QUANTITY:30 TABLET(S);?
     Route: 048
     Dates: start: 20180824, end: 20180828
  17. VITAMIN K [Concomitant]
     Active Substance: PHYTONADIONE

REACTIONS (7)
  - Product substitution issue [None]
  - Insomnia [None]
  - Drug effect decreased [None]
  - Drug effect delayed [None]
  - Mood altered [None]
  - Agitation [None]
  - Hallucination, visual [None]

NARRATIVE: CASE EVENT DATE: 20180824
